FAERS Safety Report 10379169 (Version 1)
Quarter: 2014Q3

REPORT INFORMATION
  Report Type: Spontaneous
  Country: JP (occurrence: JP)
  Receive Date: 20140812
  Receipt Date: 20140812
  Transmission Date: 20150326
  Serious: No
  Sender: FDA-Public Use
  Company Number: PHHY2012JP134484

PATIENT
  Age: 54 Year
  Sex: Male

DRUGS (2)
  1. TASIGNA [Suspect]
     Active Substance: NILOTINIB
     Indication: CHRONIC MYELOID LEUKAEMIA
     Dosage: 800 MG, DAILY
     Dates: start: 20120401
  2. SPRYCEL [Suspect]
     Active Substance: DASATINIB
     Dates: start: 20120101, end: 20120401

REACTIONS (3)
  - Drug intolerance [Unknown]
  - Headache [Recovered/Resolved]
  - Gynaecomastia [Unknown]
